FAERS Safety Report 13269944 (Version 1)
Quarter: 2017Q1

REPORT INFORMATION
  Report Type: Spontaneous
  Country: US (occurrence: US)
  Receive Date: 20170224
  Receipt Date: 20170224
  Transmission Date: 20170428
  Serious: No
  Sender: FDA-Public Use
  Company Number: US-IMPAX LABORATORIES, INC-2016-IPXL-01976

PATIENT
  Age: 39 Year
  Sex: Female

DRUGS (15)
  1. MIRTAZAPINE ODT [Suspect]
     Active Substance: MIRTAZAPINE
     Route: 065
  2. BACLOFEN. [Suspect]
     Active Substance: BACLOFEN
     Route: 065
  3. ESCITALOPRAM [Suspect]
     Active Substance: ESCITALOPRAM OXALATE
     Route: 065
     Dates: start: 20130108
  4. TRAZODONE [Suspect]
     Active Substance: TRAZODONE HYDROCHLORIDE
     Route: 065
  5. LEVOXYL [Suspect]
     Active Substance: LEVOTHYROXINE SODIUM
     Route: 065
  6. ESZOPICLONE. [Suspect]
     Active Substance: ESZOPICLONE
     Route: 065
  7. PROTONIX [Suspect]
     Active Substance: PANTOPRAZOLE SODIUM
     Route: 065
  8. PENICILLIN [Suspect]
     Active Substance: PENICILLIN
     Route: 065
  9. DAYPRO [Suspect]
     Active Substance: OXAPROZIN
     Route: 065
  10. ZOLPIDEM [Suspect]
     Active Substance: ZOLPIDEM\ZOLPIDEM TARTRATE
     Route: 065
  11. SYNTHROID [Suspect]
     Active Substance: LEVOTHYROXINE SODIUM
     Route: 065
  12. TEGRETOL [Suspect]
     Active Substance: CARBAMAZEPINE
     Route: 065
  13. CITALOPRAM [Suspect]
     Active Substance: CITALOPRAM HYDROBROMIDE
     Route: 065
  14. ZITHROMAX [Suspect]
     Active Substance: AZITHROMYCIN DIHYDRATE
     Route: 065
  15. LYRICA [Suspect]
     Active Substance: PREGABALIN
     Dosage: 200 MILLIGRAM DAILY;
     Route: 065

REACTIONS (8)
  - Abdominal pain upper [Unknown]
  - Drug hypersensitivity [Unknown]
  - Headache [Unknown]
  - Rash [Unknown]
  - Fatigue [Unknown]
  - Adverse event [Unknown]
  - Burning sensation [Unknown]
  - Abdominal discomfort [Unknown]

NARRATIVE: CASE EVENT DATE: 20130108
